FAERS Safety Report 6425020-7 (Version None)
Quarter: 2009Q4

REPORT INFORMATION
  Report Type: 
  Country: None (occurrence: None)
  Receive Date: 20091103
  Receipt Date: 20091023
  Transmission Date: 20100525
  Serious: Yes (Other)
  Sender: FDA-Public Use
  Company Number: GXKR2009JP10933

PATIENT
  Age: 67 Year
  Sex: Female

DRUGS (3)
  1. AMLODIPINE BESYLATE SANDOZ (NGX) [Suspect]
     Indication: HYPERTENSION
     Dosage: 5 MG/DAY
     Route: 048
     Dates: start: 20090702
  2. ATORVASTATIN [Concomitant]
     Route: 048
  3. AMARYL [Concomitant]
     Route: 048

REACTIONS (1)
  - LEUKOPLAKIA [None]
